FAERS Safety Report 12054165 (Version 1)
Quarter: 2016Q1

REPORT INFORMATION
  Report Type: Report from Study
  Country: US (occurrence: US)
  Receive Date: 20160209
  Receipt Date: 20160209
  Transmission Date: 20160526
  Serious: Yes (Hospitalization)
  Sender: FDA-Public Use
  Company Number: US-US WORLDMEDS, LLC-USW201601-000121

PATIENT
  Age: 1 Year
  Sex: Male

DRUGS (1)
  1. NADOLOL. [Suspect]
     Active Substance: NADOLOL

REACTIONS (3)
  - Ketoacidosis [Recovered/Resolved]
  - Hypoglycaemic seizure [Recovered/Resolved]
  - Product use issue [Unknown]
